FAERS Safety Report 8295401-8 (Version None)
Quarter: 2012Q2

REPORT INFORMATION
  Report Type: 
  Country: None (occurrence: None)
  Receive Date: 20120418
  Receipt Date: 20120410
  Transmission Date: 20120825
  Serious: Yes (Other)
  Sender: FDA-Public Use
  Company Number: US-BAYER-201028261NA

PATIENT
  Age: 66 Year
  Sex: Male
  Weight: 90 kg

DRUGS (22)
  1. ATIVAN [Concomitant]
     Dosage: 2 MG, BID
     Route: 048
     Dates: start: 20040512
  2. REGLAN [Concomitant]
     Dosage: 10 MG, ONCE
     Route: 048
  3. PAPAVERINE [Concomitant]
     Dosage: 60 MG, UNK
     Route: 042
     Dates: start: 20040513
  4. TRASYLOL [Suspect]
     Indication: CORONARY ARTERY BYPASS
     Dosage: LOADING DOSE - 2 MIL KIU FOLLOWED BY 50,000KIU/HR (200 PRIME)
     Route: 042
     Dates: start: 20040513, end: 20040513
  5. PROTONIX [Concomitant]
     Dosage: 40 MG, QD
  6. LOVENOX [Concomitant]
     Dosage: 90 MG, BID
     Route: 058
  7. HEPARIN [Concomitant]
  8. PROTAMINE SULFATE [Concomitant]
  9. ASPIRIN [Concomitant]
     Dosage: 325 MG, ONCE
     Route: 048
     Dates: start: 20040511
  10. ZINACEF [Concomitant]
     Dosage: UNK
     Route: 042
     Dates: start: 20040513
  11. DIOVAN HCT [Concomitant]
     Dosage: 80/12.5, QD
     Route: 048
  12. LOPRESSOR [Concomitant]
     Dosage: 25 MG, BID
     Route: 048
  13. CALCIUM CHLORIDE [Concomitant]
  14. ISOFLURANE [Concomitant]
  15. PANCURONIUM BROMIDE [Concomitant]
  16. EPINEPHRINE [Concomitant]
     Dosage: 0.1MCG/KG/MIN
  17. VERSED [Concomitant]
  18. BENADRYL [Concomitant]
     Dosage: 50 MG, UNK
  19. ASPIRIN [Concomitant]
     Dosage: 325 MG, QD
     Route: 048
  20. DOPAMINE HCL [Concomitant]
     Dosage: 5 MCG/KG/MIN
  21. CARDIOPLEGIA [Concomitant]
     Dosage: 1250 CC
  22. NITROGLYCERIN [Concomitant]

REACTIONS (14)
  - RENAL INJURY [None]
  - ANHEDONIA [None]
  - STRESS [None]
  - FEAR [None]
  - RENAL IMPAIRMENT [None]
  - PAIN [None]
  - ANXIETY [None]
  - INJURY [None]
  - EMOTIONAL DISTRESS [None]
  - RENAL FAILURE [None]
  - RENAL DISORDER [None]
  - DEPRESSION [None]
  - MYOCARDIAL INFARCTION [None]
  - NERVOUSNESS [None]
